FAERS Safety Report 8863090 (Version 2)
Quarter: 2012Q4

REPORT INFORMATION
  Report Type: 
  Country: US (occurrence: US)
  Receive Date: 20121026
  Receipt Date: 20121228
  Transmission Date: 20130627
  Serious: Yes (Hospitalization, Congenital Anomaly, Other)
  Sender: FDA-Public Use
  Company Number: US-PFIZER INC-2012263757

PATIENT
  Sex: Female
  Weight: .91 kg

DRUGS (5)
  1. ZOLOFT [Suspect]
     Dosage: UNK
     Route: 064
     Dates: start: 1990, end: 2012
  2. ZOLOFT [Suspect]
     Dosage: UNK
     Route: 064
     Dates: start: 199504, end: 200606
  3. TYLENOL [Concomitant]
     Dosage: UNK
     Route: 064
  4. PRENATAL VITAMINS [Concomitant]
     Dosage: UNK
     Route: 064
  5. TUMS [Concomitant]
     Dosage: UNK
     Route: 064

REACTIONS (8)
  - Maternal exposure timing unspecified [Unknown]
  - Craniosynostosis [Unknown]
  - Congenital anomaly [Unknown]
  - Pharyngotonsillitis [Unknown]
  - Visual field defect [Unknown]
  - Adenoidal hypertrophy [Unknown]
  - Tonsillar hypertrophy [Unknown]
  - Migraine [Unknown]
